FAERS Safety Report 7124602-7 (Version None)
Quarter: 2010Q4

REPORT INFORMATION
  Report Type: 
  Country: None (occurrence: None)
  Receive Date: 20101122
  Receipt Date: 20101122
  Transmission Date: 20110411
  Serious: No
  Sender: FDA-Public Use
  Company Number: None

PATIENT
  Age: 9 Month
  Sex: Female
  Weight: 9.9791 kg

DRUGS (1)
  1. TEETHING TABLET -125 COUNT BOTTLE- HYLANDS [Suspect]
     Indication: TEETHING
     Dosage: 2 TABLETS 4-6 HOURS SL
     Route: 060
     Dates: start: 20101115, end: 20101118

REACTIONS (5)
  - HEART RATE INCREASED [None]
  - LETHARGY [None]
  - MYDRIASIS [None]
  - PRODUCT QUALITY ISSUE [None]
  - URINE OUTPUT DECREASED [None]
